FAERS Safety Report 5191133-3 (Version None)
Quarter: 2006Q4

REPORT INFORMATION
  Report Type: 
  Country: None (occurrence: None)
  Receive Date: 20061226
  Receipt Date: 20061214
  Transmission Date: 20070319
  Serious: Yes (Disabling, Other)
  Sender: FDA-Public Use
  Company Number: PHBS2006FI19378

PATIENT
  Age: 38 Year
  Sex: Male

DRUGS (5)
  1. VOLTAREN [Suspect]
     Indication: PROCEDURAL PAIN
     Dosage: 1 DRP, TID
  2. VEXOL [Suspect]
     Indication: PROPHYLAXIS
     Dosage: 1 DRP, BID
  3. OFTAQUIX [Concomitant]
     Dosage: UNK, TID
  4. CHLOROMYCETIN [Concomitant]
     Dosage: UNK, TID
  5. OCULAC SDU [Concomitant]

REACTIONS (3)
  - CORNEAL THINNING [None]
  - DRUG INTERACTION [None]
  - HYPERMETROPIA [None]
